FAERS Safety Report 5889952-0 (Version None)
Quarter: 2008Q3

REPORT INFORMATION
  Report Type: 
  Country: None (occurrence: None)
  Receive Date: 20080919
  Receipt Date: 20080909
  Transmission Date: 20090109
  Serious: Yes (Hospitalization)
  Sender: FDA-Public Use
  Company Number: TW-SANOFI-SYNTHELABO-A01200810987

PATIENT
  Age: 37 Year
  Sex: Female

DRUGS (7)
  1. FLUCLOROLONE ACETATE [Concomitant]
     Indication: PRURITUS
     Dosage: UNK
     Route: 061
     Dates: start: 20080329, end: 20080411
  2. HYDROXYZINE [Concomitant]
     Indication: PRURITUS
     Dosage: 100 MG
     Route: 048
     Dates: start: 20080329, end: 20080411
  3. DOXEPIN HCL [Concomitant]
     Indication: PRURITUS
     Dosage: 12.5 MG
     Route: 048
     Dates: start: 20080329, end: 20080411
  4. CHLORPHENIRAMINE MALEATE [Concomitant]
     Indication: PRURITUS
     Dosage: 10 MG
     Route: 042
     Dates: start: 20080329, end: 20080411
  5. CELECOXIB [Concomitant]
     Indication: SYSTEMIC LUPUS ERYTHEMATOSUS
     Dosage: 400 MG
     Route: 048
     Dates: start: 20080329, end: 20080411
  6. METHYLPREDNISOLONE [Concomitant]
     Indication: SYSTEMIC LUPUS ERYTHEMATOSUS
     Dosage: 32 MG
     Route: 042
     Dates: start: 20080329, end: 20080411
  7. PLAQUENIL [Suspect]
     Indication: SYSTEMIC LUPUS ERYTHEMATOSUS
     Dosage: 400 MG
     Route: 048
     Dates: start: 20080329, end: 20080411

REACTIONS (1)
  - TOXIC EPIDERMAL NECROLYSIS [None]
